FAERS Safety Report 4669286-2 (Version None)
Quarter: 2005Q2

REPORT INFORMATION
  Report Type: 
  Country: None (occurrence: None)
  Receive Date: 20050519
  Receipt Date: 20050503
  Transmission Date: 20051028
  Serious: Yes (Life-Threatening)
  Sender: FDA-Public Use
  Company Number: 106561ISR

PATIENT
  Sex: Male

DRUGS (1)
  1. METHOTREXATE [Suspect]
     Dosage: 25 MILLIGRAM QW
     Route: 058
     Dates: start: 19970101

REACTIONS (1)
  - CARCINOID TUMOUR PULMONARY [None]
